FAERS Safety Report 7803085-5 (Version None)
Quarter: 2011Q4

REPORT INFORMATION
  Report Type: 
  Country: None (occurrence: None)
  Receive Date: 20111007
  Receipt Date: 20110926
  Transmission Date: 20120403
  Serious: Yes (Hospitalization)
  Sender: FDA-Public Use
  Company Number: FI-JNJFOC-20111002051

PATIENT
  Age: 73 Year
  Sex: Male

DRUGS (7)
  1. PRIMASPAN [Concomitant]
     Indication: ILL-DEFINED DISORDER
  2. XARELTO [Suspect]
     Indication: THROMBOSIS PROPHYLAXIS
     Route: 048
     Dates: start: 20110902, end: 20110911
  3. BISOPROLOL [Concomitant]
     Indication: ILL-DEFINED DISORDER
  4. THYROXIN [Concomitant]
     Indication: ILL-DEFINED DISORDER
  5. SYMBICORT [Concomitant]
     Indication: ILL-DEFINED DISORDER
  6. ACETAMINOPHEN [Concomitant]
     Indication: ILL-DEFINED DISORDER
  7. ARCOXIA [Concomitant]
     Indication: ILL-DEFINED DISORDER

REACTIONS (1)
  - DUODENAL ULCER [None]
